FAERS Safety Report 4378927-9 (Version None)
Quarter: 2004Q2

REPORT INFORMATION
  Report Type: 
  Country: None (occurrence: None)
  Receive Date: 20040601
  Receipt Date: 20040202
  Transmission Date: 20050107
  Serious: No
  Sender: FDA-Public Use
  Company Number: WAES 0402USA00207

PATIENT
  Age: 69 Year
  Sex: Female

DRUGS (3)
  1. ZETIA [Suspect]
     Indication: BLOOD CHOLESTEROL INCREASED
     Dosage: 10 MG DAILY PO
     Route: 048
     Dates: start: 20040101, end: 20040201
  2. NORVASC [Concomitant]
  3. ATENOLOL [Concomitant]

REACTIONS (1)
  - OEDEMA PERIPHERAL [None]
